FAERS Safety Report 6207463-X (Version None)
Quarter: 2009Q2

REPORT INFORMATION
  Report Type: 
  Country: None (occurrence: None)
  Receive Date: 20090528
  Receipt Date: 20090521
  Transmission Date: 20091009
  Serious: Yes (Hospitalization, Other)
  Sender: FDA-Public Use
  Company Number: US-PFIZER INC-2008156633

PATIENT
  Sex: Female
  Weight: 106 kg

DRUGS (16)
  1. SUTENT [Suspect]
     Indication: RENAL CELL CARCINOMA
     Dosage: 50 MG, 1X/DAY
     Dates: start: 20080701
  2. LASIX [Concomitant]
     Dosage: UNK
  3. KLOR-CON [Concomitant]
     Dosage: UNK
  4. METFORMIN HYDROCHLORIDE [Concomitant]
     Dosage: UNK
  5. NEURONTIN [Concomitant]
     Dosage: UNK
  6. OXYCONTIN [Concomitant]
     Dosage: UNK
  7. NEXIUM [Concomitant]
     Dosage: UNK
  8. ZOLOFT [Concomitant]
     Dosage: UNK
  9. METOCLOPRAMIDE [Concomitant]
     Dosage: UNK
  10. SYNTHROID [Concomitant]
     Dosage: UNK
  11. METOLAZONE [Concomitant]
     Dosage: UNK
  12. BYETTA [Concomitant]
     Dosage: UNK
  13. AMBIEN [Concomitant]
     Dosage: UNK
  14. OXYCODONE HCL [Concomitant]
     Dosage: UNK
  15. COMPAZINE [Concomitant]
  16. ALDACTONE [Concomitant]

REACTIONS (10)
  - ALBUMIN GLOBULIN RATIO DECREASED [None]
  - BLOOD CHLORIDE ABNORMAL [None]
  - BLOOD GLUCOSE ABNORMAL [None]
  - BLOOD TEST ABNORMAL [None]
  - DISEASE PROGRESSION [None]
  - ELECTROLYTE IMBALANCE [None]
  - GLOBULIN ABNORMAL [None]
  - HYPOKALAEMIA [None]
  - HYPOTHYROIDISM [None]
  - RENAL CELL CARCINOMA [None]
